FAERS Safety Report 10548824 (Version 2)
Quarter: 2015Q1

REPORT INFORMATION
  Report Type: Report from Study
  Country: ES (occurrence: ES)
  Receive Date: 20141028
  Receipt Date: 20150313
  Transmission Date: 20150720
  Serious: Yes (Death, Other)
  Sender: FDA-Public Use
  Company Number: ES-CELGENE-ESP-2014104177

PATIENT

DRUGS (6)
  1. RITUXIMAB [Suspect]
     Active Substance: RITUXIMAB
     Route: 065
  2. RITUXIMAB [Suspect]
     Active Substance: RITUXIMAB
     Route: 065
  3. RITUXIMAB [Suspect]
     Active Substance: RITUXIMAB
     Indication: CHRONIC LYMPHOCYTIC LEUKAEMIA
     Route: 065
  4. RITUXIMAB [Suspect]
     Active Substance: RITUXIMAB
     Route: 065
  5. REVLIMID [Suspect]
     Active Substance: LENALIDOMIDE
     Route: 048
  6. REVLIMID [Suspect]
     Active Substance: LENALIDOMIDE
     Indication: CHRONIC LYMPHOCYTIC LEUKAEMIA
     Route: 048

REACTIONS (12)
  - Progressive multifocal leukoencephalopathy [Fatal]
  - Infection [Fatal]
  - Gastrointestinal haemorrhage [Unknown]
  - Constipation [Unknown]
  - Multi-organ failure [Fatal]
  - Infusion related reaction [Unknown]
  - Haemolytic anaemia [Unknown]
  - Toxicity to various agents [Unknown]
  - Chronic lymphocytic leukaemia [Fatal]
  - Death [Fatal]
  - Amyotrophic lateral sclerosis [Fatal]
  - Neutropenia [Unknown]
